FAERS Safety Report 4829278-7 (Version None)
Quarter: 2005Q4

REPORT INFORMATION
  Report Type: 
  Country: None (occurrence: None)
  Receive Date: 20051116
  Receipt Date: 20041209
  Transmission Date: 20060501
  Serious: Yes (Life-Threatening)
  Sender: FDA-Public Use
  Company Number: JP-GLAXOSMITHKLINE-B0360618A

PATIENT
  Age: 66 Year
  Sex: Female

DRUGS (7)
  1. PAXIL [Suspect]
     Indication: DEPRESSION
     Route: 048
     Dates: start: 20040423, end: 20041130
  2. RISPERIDONE [Suspect]
     Indication: ANXIETY
     Dosage: 2MG PER DAY
     Route: 048
     Dates: start: 20041120, end: 20041121
  3. ARTANE [Concomitant]
     Dosage: 2MG THREE TIMES PER DAY
     Route: 048
     Dates: start: 20040823, end: 20041126
  4. SOLANAX [Concomitant]
     Indication: ANXIETY
     Dosage: .4MG THREE TIMES PER DAY
     Route: 048
     Dates: start: 20040705, end: 20041126
  5. SILECE [Concomitant]
     Indication: INSOMNIA
     Dosage: 2MG PER DAY
     Route: 065
     Dates: start: 20040705, end: 20041208
  6. LAXOBERON [Concomitant]
     Indication: CONSTIPATION
     Dosage: 2.5MG PER DAY
     Route: 048
     Dates: start: 20040705, end: 20041126
  7. PURSENNID [Concomitant]
     Indication: CONSTIPATION
     Dosage: 12MG PER DAY
     Route: 048
     Dates: start: 20040705, end: 20041126

REACTIONS (8)
  - AKINESIA [None]
  - BLOOD CREATINE PHOSPHOKINASE INCREASED [None]
  - MUTISM [None]
  - MYOCLONUS [None]
  - PAIN [None]
  - RHABDOMYOLYSIS [None]
  - SEROTONIN SYNDROME [None]
  - STUPOR [None]
